FAERS Safety Report 5739801-6 (Version None)
Quarter: 2008Q2

REPORT INFORMATION
  Report Type: 
  Country: None (occurrence: None)
  Receive Date: 20080513
  Receipt Date: 20080513
  Transmission Date: 20081010
  Serious: Yes (Hospitalization)
  Sender: FDA-Public Use
  Company Number: None

PATIENT
  Age: 55 Year
  Sex: Male

DRUGS (1)
  1. ASPIRIN [Suspect]
     Indication: BACK PAIN
     Dosage: 1 TABLET QID PO/3-4 DAYS
     Route: 048

REACTIONS (5)
  - DUODENITIS HAEMORRHAGIC [None]
  - DYSPNOEA [None]
  - GASTRIC ULCER HAEMORRHAGE [None]
  - GASTRITIS [None]
  - HELICOBACTER PYLORI IDENTIFICATION TEST POSITIVE [None]
